FAERS Safety Report 15457425 (Version 2)
Quarter: 2018Q4

REPORT INFORMATION
  Report Type: Spontaneous
  Country: NZ (occurrence: NZ)
  Receive Date: 20181002
  Receipt Date: 20181023
  Transmission Date: 20190204
  Serious: Yes (Other)
  Sender: FDA-Public Use
  Company Number: NZ-BAXTER-2018BAX024524

PATIENT
  Age: 3 Year
  Sex: Male

DRUGS (14)
  1. WATER FOR INJECTION [Suspect]
     Active Substance: WATER
     Indication: GASTROINTESTINAL MOTILITY DISORDER
     Dosage: 18 HOURS VIA CVL; TPN WATER FOR RECONSTITUTION
     Route: 042
  2. WATER FOR INJECTION [Suspect]
     Active Substance: WATER
     Indication: GASTROINTESTINAL MOTILITY DISORDER
     Dosage: 18 HOURS VIA CVL; TPN WATER FOR INJECTION - BAXTER UNLICENSED SPECIAL
     Route: 042
  3. ZINC. [Suspect]
     Active Substance: ZINC
     Indication: GASTROINTESTINAL MOTILITY DISORDER
     Dosage: 18 HOURS VIA CVL; BAXTER UNLICENSED SPECIAL
     Route: 042
  4. POTASSIUM CHLORIDE. [Suspect]
     Active Substance: POTASSIUM CHLORIDE
     Indication: GASTROINTESTINAL MOTILITY DISORDER
     Dosage: STRENGTH: 3 MMOL/ML, 18 HOURS VIA CVL; BAXTER UNLICENSED SPECIAL
     Route: 042
  5. CALCIUM GLUCONATE. [Suspect]
     Active Substance: CALCIUM GLUCONATE
     Indication: GASTROINTESTINAL MOTILITY DISORDER
     Dosage: STRENGTH: 0.22 MMOL/ML, 18 HOURS VIA CVL; BAXTER UNLICENSED SPECIAL
     Route: 042
  6. SYNTHAMIN [Suspect]
     Active Substance: AMINO ACIDS
     Indication: GASTROINTESTINAL MOTILITY DISORDER
     Dosage: 18 HOURS VIA CVL
     Route: 042
  7. GLUCOSE [Suspect]
     Active Substance: DEXTROSE
     Indication: GASTROINTESTINAL MOTILITY DISORDER
     Dosage: 18 HOURS VIA CVL; TPN GLUCOSE 70% - BAXTER UNLICENSED SPECIAL
     Route: 042
  8. SODIUM CHLORIDE. [Suspect]
     Active Substance: SODIUM CHLORIDE
     Indication: GASTROINTESTINAL MOTILITY DISORDER
     Dosage: STRENGTH: 4 MMOL/ML, 18 HOURS VIA CVL; BAXTER UNLICENSED SPECIAL
     Route: 042
  9. MAGNESIUM SULFATE. [Suspect]
     Active Substance: MAGNESIUM SULFATE
     Indication: GASTROINTESTINAL MOTILITY DISORDER
     Dosage: STRENGTH: 2 MMOL/ML; 18 HOURS VIA CVL; BAXTER UNLICENSED SPECIAL
     Route: 042
  10. POTASSIUM DI-H PHOSPHATE [Suspect]
     Active Substance: POTASSIUM PHOSPHATE, MONOBASIC
     Indication: GASTROINTESTINAL MOTILITY DISORDER
     Dosage: STRENGTH: 1 MMOL/ML; 18 HOURS VIA CVL; BAXTER UNLICENSED SPECIAL
     Route: 042
  11. SOLUVIT N [Suspect]
     Active Substance: VITAMINS
     Indication: GASTROINTESTINAL MOTILITY DISORDER
     Dosage: 18 HOURS VIA CVL
     Route: 042
  12. AUSPEN TRACE ELEMENTS [Suspect]
     Active Substance: MINERALS
     Indication: GASTROINTESTINAL MOTILITY DISORDER
     Dosage: 18 HOURS VIA CVL; BAXTER UNLICENSED SPECIAL
     Route: 042
  13. VITALIPID N INFANT [Suspect]
     Active Substance: .ALPHA.-TOCOPHEROL, DL-\ERGOCALCIFEROL\PHYTONADIONE\VITAMIN A PALMITATE
     Indication: GASTROINTESTINAL MOTILITY DISORDER
     Dosage: 18 HOURS VIA CVL
     Route: 042
  14. SMOFLIPID [Suspect]
     Active Substance: FISH OIL\MEDIUM-CHAIN TRIGLYCERIDES\OLIVE OIL\SOYBEAN OIL
     Indication: GASTROINTESTINAL MOTILITY DISORDER
     Dosage: 18 HOURS VIA CVL
     Route: 042

REACTIONS (2)
  - Product supply issue [Unknown]
  - Hypoglycaemia [Recovered/Resolved]

NARRATIVE: CASE EVENT DATE: 201809
